FAERS Safety Report 8930578 (Version 1)
Quarter: 2012Q4

REPORT INFORMATION
  Report Type: 
  Country: RO (occurrence: RO)
  Receive Date: 20121128
  Receipt Date: 20121128
  Transmission Date: 20130627
  Serious: Yes (Other)
  Sender: FDA-Public Use
  Company Number: RO-ASTRAZENECA-2012SE88248

PATIENT
  Age: 23343 Day
  Sex: Female
  Weight: 86 kg

DRUGS (5)
  1. VIMOVO [Suspect]
     Indication: RHEUMATOID ARTHRITIS
     Dosage: 2 tabs, every day
     Route: 048
     Dates: start: 20121002, end: 20121004
  2. VIMOVO [Suspect]
     Indication: PERIARTHRITIS
     Dosage: 2 tabs, every day
     Route: 048
     Dates: start: 20121002, end: 20121004
  3. TERTENSIF SR [Concomitant]
     Indication: HYPERTENSION
     Route: 048
  4. PREDUCTAL MR [Concomitant]
     Indication: MYOCARDIAL ISCHAEMIA
     Route: 048
  5. ATACAND [Concomitant]
     Indication: HYPERTENSION
     Route: 048

REACTIONS (2)
  - Face oedema [Recovered/Resolved]
  - Rash erythematous [Recovered/Resolved]
